FAERS Safety Report 15101738 (Version 1)
Quarter: 2018Q3

REPORT INFORMATION
  Report Type: Spontaneous
  Country: US (occurrence: US)
  Receive Date: 20180703
  Receipt Date: 20180703
  Transmission Date: 20181010
  Serious: Yes (Hospitalization, Other)
  Sender: FDA-Public Use
  Company Number: US-ASTRAZENECA-2009SE31849

PATIENT
  Age: 802 Month
  Sex: Female
  Weight: 70.8 kg

DRUGS (15)
  1. SYMBICORT [Suspect]
     Active Substance: BUDESONIDE\FORMOTEROL FUMARATE DIHYDRATE
     Indication: CHRONIC OBSTRUCTIVE PULMONARY DISEASE
     Dosage: 80 UG, 2 PUFFS TWICE A DAY ONCE/SINGLE ADMINISTRATION
     Route: 055
     Dates: start: 20091211, end: 20091211
  2. POTASSIUM [Concomitant]
     Active Substance: POTASSIUM
  3. PROAIR HFA ALBUTEROL [Concomitant]
     Indication: COUGH
     Dosage: TWO PUFFS BY MOUTH Q4HRS OR PRN
     Route: 055
  4. PROAIR HFA ALBUTEROL [Concomitant]
     Indication: CHRONIC OBSTRUCTIVE PULMONARY DISEASE
     Dosage: TWO PUFFS BY MOUTH Q4HRS OR PRN
     Route: 055
  5. HYZARR [Concomitant]
     Indication: DIURETIC THERAPY
     Route: 048
  6. ARIMIDEX [Suspect]
     Active Substance: ANASTROZOLE
     Indication: BREAST CANCER
     Dosage: ONE TO TWO PILLS EVERY 12 HOURS
     Route: 048
     Dates: start: 200606
  7. FLONASE [Concomitant]
     Active Substance: FLUTICASONE PROPIONATE
     Indication: CHRONIC OBSTRUCTIVE PULMONARY DISEASE
     Dosage: 50 UG, ONE SPRAY QD EACH NOSTRIL
     Route: 045
  8. VENLAFAXINE [Concomitant]
     Active Substance: VENLAFAXINE HYDROCHLORIDE
     Indication: ANXIETY
     Dosage: 150 MG AND 75 MG
     Route: 048
  9. ACIPHEX [Concomitant]
     Active Substance: RABEPRAZOLE SODIUM
     Indication: DYSPEPSIA
     Route: 048
  10. VITAMIN D [Concomitant]
     Active Substance: CHOLECALCIFEROL
     Indication: VITAMIN D DEFICIENCY
     Route: 048
  11. VENLAFAXINE [Concomitant]
     Active Substance: VENLAFAXINE HYDROCHLORIDE
     Indication: IMPATIENCE
     Dosage: 150 MG AND 75 MG
     Route: 048
  12. SYNTHROID [Concomitant]
     Active Substance: LEVOTHYROXINE SODIUM
     Indication: HYPOTHYROIDISM
     Route: 048
  13. PROAIR HFA ALBUTEROL [Concomitant]
     Indication: WHEEZING
     Dosage: TWO PUFFS BY MOUTH Q4HRS OR PRN
     Route: 055
  14. VITAMIN B12 [Concomitant]
     Active Substance: CYANOCOBALAMIN
     Dosage: EVERY 28 DAYS
     Dates: start: 1998
  15. DILTIAZEM. [Concomitant]
     Active Substance: DILTIAZEM

REACTIONS (21)
  - Decreased appetite [Recovering/Resolving]
  - Chronic obstructive pulmonary disease [Unknown]
  - Quality of life decreased [Unknown]
  - Constipation [Unknown]
  - Hypotension [Recovered/Resolved]
  - Stress [Recovered/Resolved]
  - Benign renal neoplasm [Unknown]
  - Blood cholesterol abnormal [Unknown]
  - Colon cancer [Unknown]
  - Intentional product misuse [Unknown]
  - Weight decreased [Unknown]
  - Loss of personal independence in daily activities [Unknown]
  - Lung neoplasm malignant [Unknown]
  - Feeling abnormal [Unknown]
  - Embolism [Unknown]
  - Confusional state [Unknown]
  - Dysphagia [Recovering/Resolving]
  - Disturbance in attention [Not Recovered/Not Resolved]
  - Cataract [Unknown]
  - Nausea [Unknown]
  - Fatigue [Unknown]

NARRATIVE: CASE EVENT DATE: 200807
